FAERS Safety Report 9884256 (Version 1)
Quarter: 2014Q1

REPORT INFORMATION
  Report Type: Spontaneous
  Country: US (occurrence: US)
  Receive Date: 20140210
  Receipt Date: 20140210
  Transmission Date: 20141002
  Serious: No
  Sender: FDA-Public Use
  Company Number: US-ALLERGAN-1315589US

PATIENT
  Sex: Male

DRUGS (7)
  1. BOTOX [Suspect]
     Indication: TORTICOLLIS
     Dosage: UNK, SINGLE
     Route: 030
     Dates: start: 20130814, end: 20130814
  2. ATORVASTATIN CALCIUM TRIHYDRATE [Concomitant]
     Indication: PRODUCT USED FOR UNKNOWN INDICATION
  3. JANUVIA [Concomitant]
     Indication: DIABETES MELLITUS
  4. DIABETES MEDICATION NOS [Concomitant]
     Indication: DIABETES MELLITUS
  5. JANUMET [Concomitant]
     Indication: DIABETES MELLITUS
  6. VALIUM [Concomitant]
     Indication: RELAXATION THERAPY
     Dosage: UNK UNK, PRN
  7. VITAMINS                           /00067501/ [Concomitant]
     Indication: PRODUCT USED FOR UNKNOWN INDICATION

REACTIONS (1)
  - Drug ineffective [Unknown]
